FAERS Safety Report 8299493 (Version 12)
Quarter: 2014Q1

REPORT INFORMATION
  Report Type: Report from Study
  Country: DE (occurrence: DE)
  Receive Date: 20111219
  Receipt Date: 20140214
  Transmission Date: 20141002
  Serious: Yes (Hospitalization)
  Sender: FDA-Public Use
  Company Number: DE-GLAXOSMITHKLINE-B0764077B

PATIENT
  Sex: Female
  Weight: 94 kg

DRUGS (7)
  1. TOPOTECAN [Suspect]
     Indication: OVARIAN CANCER
     Dosage: 2.6MG PER DAY
     Route: 042
     Dates: start: 20111031
  2. BLINDED STUDY MEDICATION [Suspect]
     Indication: OVARIAN CANCER
     Route: 048
     Dates: start: 20111105
  3. HAES [Concomitant]
     Indication: VESTIBULAR NEURONITIS
     Dosage: 500G PER DAY
     Route: 042
     Dates: start: 20111216, end: 20111221
  4. TRENTAL [Concomitant]
     Indication: VESTIBULAR NEURONITIS
     Dosage: 300MG PER DAY
     Route: 042
     Dates: start: 20111216, end: 20111221
  5. SOLU-DECORTIN [Concomitant]
     Indication: VESTIBULAR NEURONITIS
     Dosage: 100MG PER DAY
     Route: 042
     Dates: start: 20111216, end: 20111221
  6. UNIZINK [Concomitant]
     Indication: VESTIBULAR NEURONITIS
     Dosage: 50MG PER DAY
     Route: 048
     Dates: start: 20111216, end: 20111221
  7. RANITIC [Concomitant]
     Indication: VESTIBULAR NEURONITIS
     Dosage: 300MG PER DAY
     Route: 048
     Dates: start: 20111216, end: 20111221

REACTIONS (4)
  - Thrombocytopenia [Recovered/Resolved]
  - Anaemia [Recovered/Resolved]
  - Vestibular disorder [Recovered/Resolved]
  - Thrombocytopenia [Recovered/Resolved]
